FAERS Safety Report 6729755-8 (Version None)
Quarter: 2010Q2

REPORT INFORMATION
  Report Type: 
  Country: None (occurrence: None)
  Receive Date: 20100513
  Receipt Date: 20100428
  Transmission Date: 20101027
  Serious: Yes (Hospitalization)
  Sender: FDA-Public Use
  Company Number: 003575

PATIENT
  Sex: Female

DRUGS (12)
  1. CERTOLIZUMAB PEGOL (CERTOLIZUMAB PEGOL) [Suspect]
     Indication: RHEUMATOID ARTHRITIS
     Dosage: (SUBCUTANEOUS)
     Route: 058
     Dates: start: 20091013, end: 20091218
  2. METHOTREXATE [Suspect]
     Dosage: (8 MG 1X/WEEK ORAL)
     Route: 048
     Dates: start: 20100105, end: 20100223
  3. REBAMIPIDE [Concomitant]
  4. PREDNISOLONE [Concomitant]
  5. ETODOLAC [Concomitant]
  6. ALENDRONATE SODIUM [Concomitant]
  7. FOLIC ACID [Concomitant]
  8. RABEPRAZOLE SODIUM [Concomitant]
  9. ISONIAZID [Concomitant]
  10. PYRIDOXAL PHOSPHATE [Concomitant]
  11. NIFEDIPINE [Concomitant]
  12. MAGNESIUM OXIDE [Concomitant]

REACTIONS (24)
  - ABDOMINAL PAIN [None]
  - ACUTE CORONARY SYNDROME [None]
  - ACUTE MYOCARDIAL INFARCTION [None]
  - ARTERIOSPASM CORONARY [None]
  - ASPERGILLUS TEST POSITIVE [None]
  - BACK PAIN [None]
  - CHLAMYDIA TEST POSITIVE [None]
  - COLLAPSE OF LUNG [None]
  - CORONARY ARTERY STENOSIS [None]
  - DIABETES MELLITUS [None]
  - DIARRHOEA [None]
  - DRUG INEFFECTIVE [None]
  - ELECTROCARDIOGRAM ST SEGMENT ELEVATION [None]
  - HAEMOPTYSIS [None]
  - HAEMORRHOIDS [None]
  - HEADACHE [None]
  - INFLUENZA [None]
  - INTERSTITIAL LUNG DISEASE [None]
  - LUNG CONSOLIDATION [None]
  - MYCOPLASMA TEST POSITIVE [None]
  - NO THERAPEUTIC RESPONSE [None]
  - ORAL CANDIDIASIS [None]
  - PLEURAL EFFUSION [None]
  - PNEUMONIA PNEUMOCOCCAL [None]
